FAERS Safety Report 5812504-5 (Version None)
Quarter: 2008Q3

REPORT INFORMATION
  Report Type: 
  Country: None (occurrence: None)
  Receive Date: 20080711
  Receipt Date: 20080626
  Transmission Date: 20090109
  Serious: Yes (Other)
  Sender: FDA-Public Use
  Company Number: 2008S1011132

PATIENT
  Age: 55 Year
  Sex: Male

DRUGS (4)
  1. PROPRANOLOL [Suspect]
     Indication: SENSORY DISTURBANCE
     Dosage: 10 MG; Q8H; ORAL
     Route: 048
     Dates: start: 20080525
  2. COPAXONE [Suspect]
     Indication: MULTIPLE SCLEROSIS
     Dosage: 20 MG; INTRAMUSCULAR
     Route: 030
     Dates: start: 20070601
  3. GRAPEFRUIT (CITRUS X PARADISI) [Suspect]
     Dosage: ORAL
     Route: 048
     Dates: start: 20080607
  4. DULOXETINE [Concomitant]

REACTIONS (4)
  - DIZZINESS [None]
  - FOOD INTERACTION [None]
  - MALAISE [None]
  - NONSPECIFIC REACTION [None]
